FAERS Safety Report 5818401-3 (Version None)
Quarter: 2008Q3

REPORT INFORMATION
  Report Type: 
  Country: None (occurrence: None)
  Receive Date: 20080716
  Receipt Date: 20080708
  Transmission Date: 20090109
  Serious: Yes (Other)
  Sender: FDA-Public Use
  Company Number: 2008SP013948

PATIENT
  Age: 49 Year
  Sex: Female

DRUGS (1)
  1. TEMODAL [Suspect]
     Indication: LUNG CANCER METASTATIC
     Dosage: PO
     Route: 048

REACTIONS (1)
  - EMBOLISM VENOUS [None]
